FAERS Safety Report 9483853 (Version 2)
Quarter: 2013Q3

REPORT INFORMATION
  Report Type: Report from Study
  Country: US (occurrence: US)
  Receive Date: 20130828
  Receipt Date: 20130828
  Transmission Date: 20140515
  Serious: Yes (Hospitalization, Other)
  Sender: FDA-Public Use
  Company Number: PHEH2013US009743

PATIENT
  Age: 54 Year
  Sex: Male

DRUGS (9)
  1. GLEEVEC [Suspect]
     Indication: GASTROINTESTINAL STROMAL TUMOUR
     Dosage: 400 MG, DAILY
     Route: 048
     Dates: start: 20130211, end: 20130421
  2. GLEEVEC [Suspect]
     Dosage: 400 MG, BID
     Route: 048
     Dates: start: 20130424
  3. DEXAMETHASONE [Concomitant]
     Dosage: 4 MG, DAILY
  4. DEXAMETHASONE [Concomitant]
     Dosage: 2 MG, DAILY
  5. MORPHINE SULFATE [Concomitant]
     Dosage: 100 MG, UNK
  6. FENTANYL [Concomitant]
     Dosage: 50 MG/H, UNK
  7. ZOFRAN [Concomitant]
     Dosage: 4 MG, UNK
  8. OMEPRAZOLE [Concomitant]
     Dosage: 40 MG, UNK
  9. COLACE [Concomitant]
     Dosage: 100 MG, BID

REACTIONS (15)
  - Thrombosis [Recovered/Resolved]
  - Pain [Unknown]
  - Nausea [Unknown]
  - Hepatic lesion [Recovering/Resolving]
  - Deep vein thrombosis [Unknown]
  - Metastases to liver [Recovering/Resolving]
  - Haemorrhoidal haemorrhage [Unknown]
  - Granuloma [Unknown]
  - Umbilical hernia [Unknown]
  - Limb discomfort [Unknown]
  - Somnolence [Unknown]
  - Oedema peripheral [Unknown]
  - Arthralgia [Unknown]
  - Pollakiuria [Unknown]
  - Night sweats [Recovering/Resolving]
